FAERS Safety Report 17111443 (Version 1)
Quarter: 2019Q4

REPORT INFORMATION
  Report Type: Spontaneous
  Country: FR (occurrence: FR)
  Receive Date: 20191204
  Receipt Date: 20191204
  Transmission Date: 20200122
  Serious: Yes (Hospitalization)
  Sender: FDA-Public Use
  Company Number: FR-MYLANLABS-2019M1118630

PATIENT
  Age: 13 Year
  Sex: Male

DRUGS (1)
  1. PREDNISOLONE MYLAN [Suspect]
     Active Substance: PREDNISOLONE
     Indication: OROPHARYNGEAL PAIN
     Dosage: 20 MILLIGRAM, QD
     Dates: start: 20191118, end: 20191121

REACTIONS (3)
  - Sleep disorder [Not Recovered/Not Resolved]
  - Vision blurred [Not Recovered/Not Resolved]
  - Hyperhidrosis [Not Recovered/Not Resolved]

NARRATIVE: CASE EVENT DATE: 201911
